FAERS Safety Report 9461334 (Version 1)
Quarter: 2013Q3

REPORT INFORMATION
  Report Type: Spontaneous
  Country: FR (occurrence: FR)
  Receive Date: 20130816
  Receipt Date: 20130816
  Transmission Date: 20140515
  Serious: Yes (Hospitalization)
  Sender: FDA-Public Use
  Company Number: FR-JNJFOC-20130806467

PATIENT
  Age: 48 Year
  Sex: Female

DRUGS (3)
  1. XARELTO [Suspect]
     Indication: THROMBOSIS PROPHYLAXIS
     Route: 048
     Dates: end: 20130714
  2. XARELTO [Suspect]
     Indication: DEEP VEIN THROMBOSIS
     Route: 048
     Dates: end: 20130714
  3. DETENSIEL [Concomitant]
     Indication: HYPERTENSION
     Route: 048

REACTIONS (2)
  - Grand mal convulsion [Recovering/Resolving]
  - Menorrhagia [Recovered/Resolved]
